FAERS Safety Report 4459774-6 (Version None)
Quarter: 2004Q3

REPORT INFORMATION
  Report Type: 
  Country: None (occurrence: None)
  Receive Date: 20040928
  Receipt Date: 20040331
  Transmission Date: 20050211
  Serious: No
  Sender: FDA-Public Use
  Company Number: US-BRISTOL-MYERS SQUIBB COMPANY-12547253

PATIENT
  Age: 30 Year
  Sex: Female
  Weight: 57 kg

DRUGS (5)
  1. KENALOG-40 [Suspect]
     Dosage: 2 CC INJECTION MIXED WITH LIDOCAINE GIVEN IN HIP
     Route: 051
     Dates: start: 20040330, end: 20040330
  2. LIDOCAINE [Suspect]
     Dosage: INJECTION
     Route: 051
  3. ORTHO CYCLEN-28 [Concomitant]
  4. CELEXA [Concomitant]
  5. NEURONTIN [Concomitant]

REACTIONS (1)
  - SYNCOPE VASOVAGAL [None]
